FAERS Safety Report 8344548-6 (Version None)
Quarter: 2012Q2

REPORT INFORMATION
  Report Type: 
  Country: None (occurrence: None)
  Receive Date: 20120508
  Receipt Date: 20120502
  Transmission Date: 20120825
  Serious: Yes (Other)
  Sender: FDA-Public Use
  Company Number: US-BAYER-2012-044168

PATIENT
  Age: 50 Year
  Sex: Female
  Weight: 98.866 kg

DRUGS (3)
  1. YAZ [Suspect]
  2. BETAMETHASONE VALERATE [Concomitant]
     Dosage: 1 %, UNK
     Route: 061
     Dates: start: 20080425
  3. NAPROXEN [Concomitant]
     Dosage: 500 MG, UNK
     Route: 048
     Dates: start: 20080609

REACTIONS (1)
  - DEEP VEIN THROMBOSIS [None]
